FAERS Safety Report 23417246 (Version 1)
Quarter: 2024Q1

REPORT INFORMATION
  Report Type: Spontaneous
  Country: US (occurrence: US)
  Receive Date: 20240118
  Receipt Date: 20240118
  Transmission Date: 20240409
  Serious: No
  Sender: FDA-Public Use
  Company Number: US-SK LIFE SCIENCE, INC-SKPVG-2023-000893

PATIENT

DRUGS (7)
  1. XCOPRI [Suspect]
     Active Substance: CENOBAMATE
     Indication: Epilepsy
     Dosage: UNK
     Route: 048
     Dates: start: 202306
  2. XCOPRI [Suspect]
     Active Substance: CENOBAMATE
     Indication: Seizure
     Dosage: 100 MILLIGRAM, QHS, ONCE EVERY NIGHT
     Route: 048
     Dates: end: 202307
  3. XCOPRI [Suspect]
     Active Substance: CENOBAMATE
     Dosage: 25MG, TAKING THOSE TO EQUAL UP TO THE 100MG, QHS
     Route: 048
     Dates: start: 202307, end: 202307
  4. XCOPRI [Suspect]
     Active Substance: CENOBAMATE
     Dosage: 100 MILLIGRAM, QD
     Route: 048
     Dates: end: 202308
  5. XCOPRI [Suspect]
     Active Substance: CENOBAMATE
     Dosage: 25 MILLIGRAM, QD
     Route: 048
     Dates: end: 202308
  6. LAMICTAL [Concomitant]
     Active Substance: LAMOTRIGINE
     Indication: Seizure
     Dosage: 200 MILLIGRAM, BID
     Route: 065
  7. LAMICTAL [Concomitant]
     Active Substance: LAMOTRIGINE
     Dosage: 100 MILLIGRAM, BID
     Route: 065

REACTIONS (2)
  - Product dose omission issue [Recovered/Resolved]
  - Product dose omission issue [Not Recovered/Not Resolved]

NARRATIVE: CASE EVENT DATE: 20230701
